FAERS Safety Report 11094487 (Version 1)
Quarter: 2015Q2

REPORT INFORMATION
  Report Type: Spontaneous
  Country: US (occurrence: US)
  Receive Date: 20150506
  Receipt Date: 20150506
  Transmission Date: 20150821
  Serious: No
  Sender: FDA-Public Use
  Company Number: US-GLAXOSMITHKLINE-US2015060220

PATIENT
  Age: 23 Year
  Sex: Male

DRUGS (1)
  1. ABREVA [Suspect]
     Active Substance: DOCOSANOL
     Indication: ORAL HERPES
     Dosage: UNK

REACTIONS (7)
  - Chapped lips [Recovered/Resolved]
  - Cheilitis [Not Recovered/Not Resolved]
  - Pruritus [Recovered/Resolved]
  - Lip swelling [Not Recovered/Not Resolved]
  - Paraesthesia oral [Not Recovered/Not Resolved]
  - Lip pain [Recovered/Resolved]
  - Swelling face [Recovered/Resolved]
